FAERS Safety Report 10435118 (Version 1)
Quarter: 2014Q3

REPORT INFORMATION
  Report Type: Spontaneous
  Country: FR (occurrence: FR)
  Receive Date: 20140907
  Receipt Date: 20140907
  Transmission Date: 20150326
  Serious: Yes (Other)
  Sender: FDA-Public Use
  Company Number: FR-009507513-1409FRA001627

PATIENT
  Age: 62 Year
  Sex: Male

DRUGS (13)
  1. VICTOZA [Suspect]
     Active Substance: LIRAGLUTIDE
     Indication: WEIGHT DECREASED
  2. HUMALOG [Concomitant]
     Active Substance: INSULIN LISPRO
  3. JANUMET [Suspect]
     Active Substance: METFORMIN HYDROCHLORIDE\SITAGLIPTIN PHOSPHATE
     Dosage: 1 DF, BID
     Route: 048
     Dates: start: 201204, end: 20131210
  4. HYPERIUM [Concomitant]
     Active Substance: RILMENIDINE PHOSPHATE
  5. VASTEN [Concomitant]
     Active Substance: PRAVASTATIN SODIUM
  6. LANTUS [Concomitant]
     Active Substance: INSULIN GLARGINE
  7. AMAREL [Concomitant]
     Active Substance: GLIMEPIRIDE
  8. VICTOZA [Suspect]
     Active Substance: LIRAGLUTIDE
     Indication: BLOOD GLUCOSE ABNORMAL
     Dosage: 1.8 MG, QD
     Route: 058
     Dates: start: 20131210, end: 20140430
  9. ATACAND [Concomitant]
     Active Substance: CANDESARTAN CILEXETIL
  10. CIPRALAN [Concomitant]
     Active Substance: CIFENLINE SUCCINATE
  11. KERLONE [Concomitant]
     Active Substance: BETAXOLOL HYDROCHLORIDE
  12. ASPEGIC [Concomitant]
     Active Substance: ASPIRIN DL-LYSINE
  13. LASILIX [Concomitant]
     Active Substance: FUROSEMIDE

REACTIONS (1)
  - Pancreatic neoplasm [Unknown]

NARRATIVE: CASE EVENT DATE: 20140509
